FAERS Safety Report 9632368 (Version 1)
Quarter: 2013Q4

REPORT INFORMATION
  Report Type: Spontaneous
  Country: FR (occurrence: None)
  Receive Date: 20131016
  Receipt Date: 20131016
  Transmission Date: 20140711
  Serious: Yes (Other)
  Sender: FDA-Public Use
  Company Number: 2013P1019933

PATIENT
  Age: 30 Day
  Sex: Female
  Weight: .73 kg

DRUGS (3)
  1. DOXAPRAM [Suspect]
     Indication: RESPIRATORY DISTRESS
     Dosage: 1 MG/KG/HOUR, IV
     Route: 042
  2. FUROSEMIDE [Suspect]
     Indication: OEDEMA
  3. CAFFEINE [Suspect]
     Indication: RESPIRATORY DISTRESS

REACTIONS (1)
  - Hypokalaemia [None]
